FAERS Safety Report 4589533-5 (Version None)
Quarter: 2005Q1

REPORT INFORMATION
  Report Type: 
  Country: None (occurrence: None)
  Receive Date: 20050216
  Receipt Date: 20050127
  Transmission Date: 20050727
  Serious: Yes (Other)
  Sender: FDA-Public Use
  Company Number: US_0502111708

PATIENT
  Age: 35 Year
  Sex: Male

DRUGS (1)
  1. ZYPREXA [Suspect]
     Indication: BIPOLAR DISORDER
     Dates: start: 19990101

REACTIONS (3)
  - CARDIOMEGALY [None]
  - DIABETES MELLITUS [None]
  - HYPERTENSION [None]
